FAERS Safety Report 23361073 (Version 1)
Quarter: 2024Q1

REPORT INFORMATION
  Report Type: Spontaneous
  Country: CN (occurrence: CN)
  Receive Date: 20240103
  Receipt Date: 20240103
  Transmission Date: 20240410
  Serious: Yes (Hospitalization, Other)
  Sender: FDA-Public Use
  Company Number: None

PATIENT
  Age: 55 Year
  Sex: Female

DRUGS (6)
  1. CYCLOPHOSPHAMIDE [Suspect]
     Active Substance: CYCLOPHOSPHAMIDE
     Indication: Lymphoma
     Dosage: 0.9 G, ONE TIME IN ONE DAY, D1, AS A PART OF RCHOP CHEMOTHERAPY
     Route: 041
     Dates: start: 20231119, end: 20231119
  2. MABTHERA [Suspect]
     Active Substance: RITUXIMAB
     Indication: Lymphoma
     Dosage: 500 MG, ONE TIME IN ONE DAY, AS A PART OF RCHOP CHEMOTHERAPY
     Route: 041
     Dates: start: 20231119, end: 20231119
  3. EPIRUBICIN [Suspect]
     Active Substance: EPIRUBICIN
     Indication: Lymphoma
     Dosage: 50 MG, D1, AS A PART OF RCHOP CHEMOTHERAPY
     Route: 065
     Dates: start: 20231119, end: 20231119
  4. EPIRUBICIN [Suspect]
     Active Substance: EPIRUBICIN
     Dosage: 40 MG, D2, AS A PART OF RCHOP CHEMOTHERAPY
     Route: 065
     Dates: start: 20231120, end: 20231120
  5. VINCRISTINE [Suspect]
     Active Substance: VINCRISTINE
     Indication: Lymphoma
     Dosage: 2 MG, D1, AS A PART OF RCHOP CHEMOTHERAPY
     Route: 065
     Dates: start: 20231119, end: 20231119
  6. PREDNISONE [Suspect]
     Active Substance: PREDNISONE
     Indication: Lymphoma
     Dosage: 100 MG, Q3W, D1-D5, AS A PART OF RCHOP CHEMOTHERAPY
     Route: 065
     Dates: start: 20231119, end: 20231123

REACTIONS (3)
  - Condition aggravated [Unknown]
  - Lymphoma [Unknown]
  - Drug-induced liver injury [Recovering/Resolving]

NARRATIVE: CASE EVENT DATE: 20231130
